FAERS Safety Report 8588371-6 (Version None)
Quarter: 2012Q3

REPORT INFORMATION
  Report Type: 
  Country: None (occurrence: None)
  Receive Date: 20120813
  Receipt Date: 20120803
  Transmission Date: 20120928
  Serious: Yes (Hospitalization)
  Sender: FDA-Public Use
  Company Number: US-US-EMD SERONO, INC.-7152928

PATIENT
  Sex: Female

DRUGS (4)
  1. TYLENOL [Concomitant]
     Indication: PRODUCT USED FOR UNKNOWN INDICATION
  2. LASIX [Concomitant]
     Indication: BLOOD PRESSURE
  3. REBIF [Suspect]
     Indication: MULTIPLE SCLEROSIS
     Route: 058
     Dates: start: 20040804
  4. POTASSIUM [Concomitant]
     Indication: BLOOD PRESSURE

REACTIONS (6)
  - MUSCULAR WEAKNESS [None]
  - ABASIA [None]
  - STAPHYLOCOCCAL INFECTION [None]
  - HALLUCINATION [None]
  - SLEEP APNOEA SYNDROME [None]
  - CYSTITIS [None]
